FAERS Safety Report 20990903 (Version 4)
Quarter: 2022Q4

REPORT INFORMATION
  Report Type: Report from Study
  Country: DK (occurrence: None)
  Receive Date: 20220622
  Receipt Date: 20221216
  Transmission Date: 20230113
  Serious: Yes (Death, Hospitalization)
  Sender: FDA-Public Use
  Company Number: DK-ROCHE-3121353

PATIENT
  Age: 75 Year
  Sex: Female
  Weight: 59 kg

DRUGS (19)
  1. COBIMETINIB [Suspect]
     Active Substance: COBIMETINIB
     Indication: BRAF gene mutation
     Dosage: MOST RECENT DOSE OF DATE 19/MAY/2022
     Route: 048
     Dates: start: 20220303, end: 20220725
  2. VEMURAFENIB [Suspect]
     Active Substance: VEMURAFENIB
     Indication: BRAF gene mutation
     Dosage: MOST RECENT DOSE (1920MG) ON 26/MAY/2022 OF VEMURAFENIB
     Route: 048
     Dates: start: 20220303, end: 20221029
  3. NYSTATIN [Concomitant]
     Active Substance: NYSTATIN
     Indication: Oral fungal infection
     Route: 048
     Dates: start: 20221029, end: 20221113
  4. INSULIN NOS [Concomitant]
     Active Substance: INSULIN NOS
     Indication: Hyperglycaemia
     Dosage: 100 E/ML 0-4IE X5 DAILY
     Route: 058
     Dates: start: 20221029, end: 20221113
  5. PENICILLIN G [Concomitant]
     Active Substance: PENICILLIN G
     Indication: Infection
     Dosage: IN SALINE 0.6 MG X 4 DAILY
     Route: 042
     Dates: start: 20221029, end: 20221031
  6. POTASSIUM CHLORIDE [Concomitant]
     Active Substance: POTASSIUM CHLORIDE
     Indication: Hypokalaemia
     Route: 048
  7. FUROSEMIDE [Concomitant]
     Active Substance: FUROSEMIDE
     Indication: Fluid retention
     Dosage: SUBSEQUENT DOSE , 12/NOV/2022, 13/NOV/2022
     Route: 048
     Dates: start: 20221030, end: 20221112
  8. AMOXICILLIN [Concomitant]
     Active Substance: AMOXICILLIN
     Route: 048
     Dates: start: 20221031, end: 20221104
  9. ACETAMINOPHEN [Concomitant]
     Active Substance: ACETAMINOPHEN
     Indication: Pain
     Dosage: 500 MG 1000MG X 1
     Route: 048
     Dates: start: 20221030, end: 20221130
  10. ACETYLCYSTEINE [Concomitant]
     Active Substance: ACETYLCYSTEINE
     Dates: start: 20221101, end: 20221113
  11. METFORMIN [Concomitant]
     Active Substance: METFORMIN HYDROCHLORIDE
     Indication: Hyperglycaemia
     Dates: start: 20221102, end: 20221113
  12. FLUCONAZOLE [Concomitant]
     Active Substance: FLUCONAZOLE
     Route: 048
     Dates: start: 20221103, end: 20221113
  13. INNOHEP [Concomitant]
     Active Substance: TINZAPARIN SODIUM
     Dosage: 3500 ANTI-XA IE X 1 DAILY SC
     Route: 058
     Dates: start: 20221108, end: 20221113
  14. RINGER-ACETAT [Concomitant]
     Indication: Dehydration
     Route: 042
     Dates: start: 20221109, end: 20221113
  15. APOVIT B-COMBIN [Concomitant]
     Route: 048
     Dates: start: 20221110, end: 20221113
  16. VITAMIN B1 [Concomitant]
     Active Substance: THIAMINE HYDROCHLORIDE
     Route: 048
     Dates: start: 20221110, end: 20221113
  17. MORPHINE [Concomitant]
     Active Substance: MORPHINE
     Indication: Pain
     Route: 058
     Dates: start: 20221113, end: 20221115
  18. MIDAZOLAM [Concomitant]
     Active Substance: MIDAZOLAM
     Indication: Anxiety
     Route: 058
     Dates: start: 20221113, end: 20221114
  19. DIAZEPAM [Concomitant]
     Active Substance: DIAZEPAM
     Indication: Anxiety
     Route: 058
     Dates: start: 20221114, end: 20221115

REACTIONS (2)
  - Chest pain [Recovered/Resolved]
  - Pneumonia [Fatal]

NARRATIVE: CASE EVENT DATE: 20220601
